FAERS Safety Report 19208198 (Version 3)
Quarter: 2021Q3

REPORT INFORMATION
  Report Type: Spontaneous
  Country: FR (occurrence: FR)
  Receive Date: 20210503
  Receipt Date: 20210803
  Transmission Date: 20211014
  Serious: Yes (Other)
  Sender: FDA-Public Use
  Company Number: FR-GLAXOSMITHKLINE-FR2021EME092932

PATIENT
  Sex: Female

DRUGS (1)
  1. BENLYSTA [Suspect]
     Active Substance: BELIMUMAB
     Indication: SYSTEMIC LUPUS ERYTHEMATOSUS
     Dosage: 200 MG

REACTIONS (12)
  - Arthralgia [Unknown]
  - Mobility decreased [Unknown]
  - Tremor [Unknown]
  - Discomfort [Unknown]
  - Injection site pain [Unknown]
  - Back pain [Unknown]
  - Osteoarthritis [Unknown]
  - Malaise [Unknown]
  - Visual impairment [Unknown]
  - Spinal compression fracture [Unknown]
  - Pain in extremity [Not Recovered/Not Resolved]
  - Cerebrovascular accident [Unknown]
